FAERS Safety Report 11058151 (Version 1)
Quarter: 2015Q2

REPORT INFORMATION
  Report Type: Spontaneous
  Country: US (occurrence: None)
  Receive Date: 20150422
  Receipt Date: 20150422
  Transmission Date: 20150821
  Serious: No
  Sender: FDA-Public Use
  Company Number: None

PATIENT
  Age: 67 Year
  Sex: Female
  Weight: 63.5 kg

DRUGS (9)
  1. CEFDINIR 300MG [Suspect]
     Active Substance: CEFDINIR
     Indication: LUNG INFECTION
     Route: 048
  2. PROAIR HFA [Concomitant]
     Active Substance: ALBUTEROL SULFATE
  3. CEFDINIR 300MG [Suspect]
     Active Substance: CEFDINIR
     Indication: SINUSITIS
     Route: 048
  4. AMITRIPTYLINE [Concomitant]
     Active Substance: AMITRIPTYLINE
  5. ADVAIR HFA [Concomitant]
     Active Substance: FLUTICASONE PROPIONATE\SALMETEROL XINAFOATE
  6. CARVEDILOL. [Concomitant]
     Active Substance: CARVEDILOL
  7. RAMIPRIL. [Concomitant]
     Active Substance: RAMIPRIL
  8. HYDROXYZINE [Concomitant]
     Active Substance: HYDROXYZINE\HYDROXYZINE HYDROCHLORIDE
  9. SOMA [Concomitant]
     Active Substance: CARISOPRODOL

REACTIONS (2)
  - Drug ineffective [None]
  - Condition aggravated [None]

NARRATIVE: CASE EVENT DATE: 20150311
